FAERS Safety Report 4554897-5 (Version None)
Quarter: 2004Q4

REPORT INFORMATION
  Report Type: 
  Country: None (occurrence: None)
  Receive Date: 20041222
  Receipt Date: 20041004
  Transmission Date: 20050328
  Serious: Yes (Hospitalization)
  Sender: FDA-Public Use
  Company Number: 209432

PATIENT
  Age: 67 Year
  Sex: Male
  Weight: 77.1 kg

DRUGS (7)
  1. AVASTIN [Suspect]
     Indication: RENAL CELL CARCINOMA STAGE UNSPECIFIED
     Dosage: 845 MG, Q2W, INTRAVENOUS
     Route: 042
     Dates: start: 20040609, end: 20040915
  2. LEXAPRO [Concomitant]
  3. CELEBREX [Concomitant]
  4. NEXIUM [Concomitant]
  5. DURAGESIC PATCH (FENTANYL CITRATE) [Concomitant]
  6. DARVOCET-N 100 (PAROXETINE NAPSYLATE, ACETAMINOPHEN) [Concomitant]
  7. MORPHINE [Concomitant]

REACTIONS (1)
  - MYOCARDIAL INFARCTION [None]
